FAERS Safety Report 15720684 (Version 1)
Quarter: 2018Q4

REPORT INFORMATION
  Report Type: Spontaneous
  Country: IL (occurrence: IL)
  Receive Date: 20181213
  Receipt Date: 20181213
  Transmission Date: 20190205
  Serious: Yes (Other)
  Sender: FDA-Public Use
  Company Number: IL-ASTRAZENECA-2018SF62488

PATIENT
  Age: 56 Year
  Sex: Male

DRUGS (6)
  1. METFORMIN [Concomitant]
     Active Substance: METFORMIN HYDROCHLORIDE
  2. REPAGLINIDE. [Concomitant]
     Active Substance: REPAGLINIDE
  3. RAMIPRIL. [Concomitant]
     Active Substance: RAMIPRIL
  4. ATORVASTATIN [Concomitant]
     Active Substance: ATORVASTATIN
  5. BISOPROLOL [Concomitant]
     Active Substance: BISOPROLOL
  6. FORXIGA [Suspect]
     Active Substance: DAPAGLIFLOZIN
     Dosage: 10.0MG UNKNOWN
     Route: 048
     Dates: start: 20150508

REACTIONS (1)
  - Bladder cancer recurrent [Unknown]
